FAERS Safety Report 18232357 (Version 1)
Quarter: 2020Q3

REPORT INFORMATION
  Report Type: Spontaneous
  Country: US (occurrence: US)
  Receive Date: 20200904
  Receipt Date: 20200904
  Transmission Date: 20201103
  Serious: Yes (Hospitalization)
  Sender: FDA-Public Use
  Company Number: None

PATIENT
  Age: 57 Year
  Sex: Female

DRUGS (12)
  1. HUMIRA [Suspect]
     Active Substance: ADALIMUMAB
     Indication: RHEUMATOID ARTHRITIS
     Dosage: ?
     Route: 058
     Dates: start: 20160328
  2. METHOTREXATE. [Concomitant]
     Active Substance: METHOTREXATE
  3. TRIMTELLIX [Concomitant]
  4. VOLTAREN [Concomitant]
     Active Substance: DICLOFENAC SODIUM
  5. ZANAFLEX [Concomitant]
     Active Substance: TIZANIDINE HYDROCHLORIDE
  6. VALSART/HCTZ [Concomitant]
  7. PROGESTERONE CAP [Concomitant]
     Active Substance: PROGESTERONE
  8. METOPROLOL TAR [Concomitant]
     Active Substance: METOPROLOL TARTRATE
  9. CYMBALTA [Concomitant]
     Active Substance: DULOXETINE HYDROCHLORIDE
  10. ATIVAN [Concomitant]
     Active Substance: LORAZEPAM
  11. VICODIN [Concomitant]
     Active Substance: ACETAMINOPHEN\HYDROCODONE BITARTRATE
  12. AMBIEN [Concomitant]
     Active Substance: ZOLPIDEM TARTRATE

REACTIONS (1)
  - Pain [None]

NARRATIVE: CASE EVENT DATE: 20200903
